FAERS Safety Report 12964783 (Version 1)
Quarter: 2016Q4

REPORT INFORMATION
  Report Type: Spontaneous
  Country: FR (occurrence: FR)
  Receive Date: 20161122
  Receipt Date: 20161122
  Transmission Date: 20170207
  Serious: Yes (Hospitalization)
  Sender: FDA-Public Use
  Company Number: FR-PFIZER INC-2016536974

PATIENT
  Age: 81 Year
  Sex: Male
  Weight: 63 kg

DRUGS (5)
  1. TEMERIT [Concomitant]
     Active Substance: NEBIVOLOL
     Indication: HYPERTENSION
     Dosage: 2.5 MG, 1X/DAY
     Route: 048
     Dates: start: 20160527
  2. FUROSEMIDE. [Suspect]
     Active Substance: FUROSEMIDE
     Indication: CHRONIC KIDNEY DISEASE
     Dosage: 375 MG, DAILY
     Route: 048
     Dates: start: 20160317, end: 20160614
  3. PREVISCAN /00261401/ [Concomitant]
     Active Substance: PENTOXIFYLLINE
     Dosage: 20 MG, 1X/DAY
     Route: 048
     Dates: start: 20140604, end: 20160926
  4. ALDACTONE [Suspect]
     Active Substance: SPIRONOLACTONE
     Indication: CHRONIC KIDNEY DISEASE
     Dosage: 50 MG, 1X/DAY
     Route: 048
     Dates: start: 20160317, end: 20160614
  5. SPECIAFOLDINE [Concomitant]
     Active Substance: FOLIC ACID
     Dosage: 5 MG, 1X/DAY
     Route: 048
     Dates: start: 20140527, end: 20160624

REACTIONS (4)
  - Blood creatinine increased [Recovered/Resolved]
  - Dehydration [Recovered/Resolved]
  - Acute kidney injury [Recovered/Resolved]
  - Acute prerenal failure [Recovered/Resolved]

NARRATIVE: CASE EVENT DATE: 20160614
